FAERS Safety Report 4787514-X (Version None)
Quarter: 2005Q4

REPORT INFORMATION
  Report Type: 
  Country: None (occurrence: None)
  Receive Date: 20051004
  Receipt Date: 20050921
  Transmission Date: 20060501
  Serious: Yes (Other)
  Sender: FDA-Public Use
  Company Number: US-JNJFOC-20050905354

PATIENT
  Sex: Female
  Weight: 70.31 kg

DRUGS (8)
  1. REMICADE [Suspect]
     Indication: RHEUMATOID ARTHRITIS
     Route: 042
  2. PREMARIN [Concomitant]
     Indication: HORMONE REPLACEMENT THERAPY
  3. AMIODARONE HCL [Concomitant]
  4. FOLIC ACID [Concomitant]
  5. METOPROLOL [Concomitant]
  6. MAVIK [Concomitant]
     Indication: BLOOD PRESSURE
  7. DIOVAN [Concomitant]
     Indication: BLOOD PRESSURE
  8. ALDACTONE [Concomitant]

REACTIONS (5)
  - DYSARTHRIA [None]
  - DYSPNOEA [None]
  - HYPOAESTHESIA ORAL [None]
  - INFUSION RELATED REACTION [None]
  - RASH [None]
